FAERS Safety Report 10520514 (Version 1)
Quarter: 2014Q4

REPORT INFORMATION
  Report Type: Spontaneous
  Country: CN (occurrence: CN)
  Receive Date: 20141015
  Receipt Date: 20141015
  Transmission Date: 20150528
  Serious: Yes (Death)
  Sender: FDA-Public Use
  Company Number: CN-PFIZER INC-2014279449

PATIENT
  Age: 51 Year
  Sex: Female

DRUGS (1)
  1. XALKORI [Suspect]
     Active Substance: CRIZOTINIB
     Indication: NON-SMALL CELL LUNG CANCER STAGE IV
     Dosage: 1 DF (CAPSULE), 2X/DAY
     Route: 048
     Dates: start: 20140929

REACTIONS (1)
  - Death [Fatal]

NARRATIVE: CASE EVENT DATE: 20141001
